FAERS Safety Report 17008474 (Version 1)
Quarter: 2019Q4

REPORT INFORMATION
  Report Type: Report from Study
  Country: US (occurrence: US)
  Receive Date: 20191108
  Receipt Date: 20191108
  Transmission Date: 20200122
  Serious: Yes (Other)
  Sender: FDA-Public Use
  Company Number: US-ROCHE-2456703

PATIENT
  Age: 53 Year
  Sex: Female
  Weight: 90.8 kg

DRUGS (1)
  1. OCREVUS [Suspect]
     Active Substance: OCRELIZUMAB
     Indication: RELAPSING MULTIPLE SCLEROSIS
     Dosage: 09/MAY/2019
     Route: 042
     Dates: start: 20190425

REACTIONS (4)
  - Urinary tract infection [Unknown]
  - Nervous system disorder [Unknown]
  - Skin papilloma [Unknown]
  - Incontinence [Recovering/Resolving]

NARRATIVE: CASE EVENT DATE: 20190725
